FAERS Safety Report 22210657 (Version 3)
Quarter: 2023Q2

REPORT INFORMATION
  Report Type: Spontaneous
  Country: US (occurrence: US)
  Receive Date: 20230414
  Receipt Date: 20230517
  Transmission Date: 20230721
  Serious: Yes (Hospitalization, Other)
  Sender: FDA-Public Use
  Company Number: US-GILEAD-2023-0624395

PATIENT
  Sex: Female

DRUGS (1)
  1. HARVONI [Suspect]
     Active Substance: LEDIPASVIR\SOFOSBUVIR
     Indication: Hepatitis C
     Dosage: UNK
     Route: 065

REACTIONS (11)
  - Eye pain [Unknown]
  - Abdominal pain upper [Unknown]
  - Retinal artery occlusion [Unknown]
  - Blindness [Unknown]
  - Headache [Unknown]
  - Renal embolism [Unknown]
  - Cryoglobulinaemia [Unknown]
  - Hepatitis C [Not Recovered/Not Resolved]
  - Abdominal discomfort [Unknown]
  - Scar [Unknown]
  - Drug ineffective [Unknown]
